FAERS Safety Report 6402233-1 (Version None)
Quarter: 2009Q4

REPORT INFORMATION
  Report Type: 
  Country: None (occurrence: None)
  Receive Date: 20091015
  Receipt Date: 20091002
  Transmission Date: 20100525
  Serious: Yes (Hospitalization, Other)
  Sender: FDA-Public Use
  Company Number: PHHY2009FR42860

PATIENT
  Age: 60 Year
  Sex: Male

DRUGS (1)
  1. GLEEVEC [Suspect]
     Indication: CHRONIC MYELOID LEUKAEMIA
     Dosage: 400 MG DAILY

REACTIONS (8)
  - BILE DUCT STONE [None]
  - CHILLS [None]
  - CHOLANGITIS [None]
  - COLORECTAL CANCER METASTATIC [None]
  - IMPAIRED HEALING [None]
  - LARGE INTESTINE ANASTOMOSIS [None]
  - METASTASES TO LIVER [None]
  - PYREXIA [None]
